FAERS Safety Report 6613299-8 (Version None)
Quarter: 2010Q1

REPORT INFORMATION
  Report Type: 
  Country: None (occurrence: None)
  Receive Date: 20100304
  Receipt Date: 20100219
  Transmission Date: 20100710
  Serious: Yes (Hospitalization, Other)
  Sender: FDA-Public Use
  Company Number: PHEH2007US11552

PATIENT
  Sex: Female

DRUGS (22)
  1. ZOMETA [Suspect]
     Dosage: UNK
     Dates: end: 20041201
  2. COLACE [Concomitant]
     Dosage: 100 MG, BID
     Route: 048
  3. DILAUDID [Concomitant]
     Dosage: 2 MG, PRN
  4. NEXIUM [Concomitant]
     Dosage: 40 MG, QD
     Route: 048
  5. PREDNISONE [Concomitant]
     Dosage: 20 MG, QD
     Route: 048
  6. ATIVAN [Concomitant]
     Dosage: 1 MG, PRN
     Route: 048
  7. PHENERGAN ^AVENTIS PHARMA^ [Concomitant]
     Dosage: 12.5 MG, PRN
     Route: 048
  8. PROPOXYPHENE HCL AND ACETAMINOPHEN [Concomitant]
     Dosage: 100 MG, UNK
     Route: 048
  9. CEPHALEXIN [Concomitant]
     Dosage: 205 MG, Q6H
     Route: 048
  10. DEXAMETHASONE [Concomitant]
     Dosage: 40 MG, QD (10EACH 4MG TABS QD)
     Route: 048
  11. OXYCODONE HCL [Concomitant]
     Dosage: 5 MG, PRN
     Route: 048
  12. SULFAMETHOXAZOLE [Concomitant]
     Dosage: UNK
     Route: 048
  13. REGLAN [Concomitant]
     Dosage: 10 MG, PRN
     Route: 048
  14. AZITHROMYC [Concomitant]
     Dosage: 250 MG, QD
     Route: 048
  15. LORAZEPAM [Concomitant]
     Dosage: 1 MG, PRN
     Route: 048
  16. PROMETHAZINE [Concomitant]
     Dosage: 25 MG, PRN
     Route: 048
  17. ZOFRAN [Concomitant]
     Dosage: 8 MG, PRN
     Route: 048
  18. TRAMADOL HCL [Concomitant]
     Dosage: 100 MG, QID
     Route: 048
  19. LEVAQUIN [Concomitant]
     Dosage: 500 MG, QD
     Route: 048
  20. PANTOPRAZOLE [Concomitant]
     Dosage: 80 MG, TID
     Route: 048
  21. FLUCONAZOLE [Concomitant]
     Dosage: 100 MG, QD
     Route: 048
  22. NYSTATIN [Concomitant]
     Dosage: 100000 U, QD
     Route: 048

REACTIONS (26)
  - ANAEMIA [None]
  - ANHEDONIA [None]
  - ANXIETY [None]
  - BONE PAIN [None]
  - CARDIAC FAILURE [None]
  - CARDIOMEGALY [None]
  - DEBRIDEMENT [None]
  - DENTAL CARIES [None]
  - FRACTURE [None]
  - INJURY [None]
  - JAW OPERATION [None]
  - METASTASES TO BONE [None]
  - MULTIPLE MYELOMA [None]
  - NASAL SINUS CANCER [None]
  - NAUSEA [None]
  - OSTEOMYELITIS [None]
  - OSTEONECROSIS [None]
  - PAIN [None]
  - PAIN IN JAW [None]
  - PNEUMONIA [None]
  - SPINAL COMPRESSION FRACTURE [None]
  - SPONDYLOLISTHESIS [None]
  - THROMBOCYTOPENIA [None]
  - TOOTH EXTRACTION [None]
  - TOOTH FRACTURE [None]
  - VOMITING [None]
